FAERS Safety Report 8400409-5 (Version None)
Quarter: 2012Q2

REPORT INFORMATION
  Report Type: 
  Country: None (occurrence: None)
  Receive Date: 20120531
  Receipt Date: 20120522
  Transmission Date: 20120825
  Serious: Yes (Hospitalization, Other)
  Sender: FDA-Public Use
  Company Number: BR-ABBOTT-12P-020-0905786-00

PATIENT
  Sex: Female
  Weight: 59 kg

DRUGS (8)
  1. ASPIRIN [Concomitant]
     Indication: THROMBOSIS PROPHYLAXIS
     Dosage: AFTER LUNCH
     Route: 048
     Dates: start: 20080101
  2. HUMIRA [Suspect]
     Indication: RHEUMATOID ARTHRITIS
     Route: 058
     Dates: end: 20120201
  3. LOSARTAN POTASSIUM [Concomitant]
     Indication: BLOOD PRESSURE
     Dosage: IN THE MORNING / AT NIGHT
     Route: 048
  4. OMEPRAZOLE [Concomitant]
     Indication: GASTRITIS
     Route: 048
  5. ARAVA [Concomitant]
     Indication: ARTHRITIS
     Route: 048
  6. HUMIRA [Suspect]
     Dates: start: 20120509
  7. PREDNISOLONE [Concomitant]
     Indication: ARTHRITIS
     Dosage: IN THE MORNING / AT NIGHT
     Route: 048
  8. PHENYTOIN [Concomitant]
     Indication: ISCHAEMIA
     Dosage: IN THE MORNING / AT NIGHT
     Route: 048
     Dates: start: 20080101

REACTIONS (20)
  - GASTRITIS [None]
  - ABDOMINAL PAIN UPPER [None]
  - NERVE COMPRESSION [None]
  - LIMB INJURY [None]
  - ABASIA [None]
  - MOUTH INJURY [None]
  - VOMITING [None]
  - EAR NEOPLASM [None]
  - BALANCE DISORDER [None]
  - COORDINATION ABNORMAL [None]
  - DIARRHOEA [None]
  - BRAIN NEOPLASM [None]
  - GASTROOESOPHAGEAL REFLUX DISEASE [None]
  - FALL [None]
  - HEARING IMPAIRED [None]
  - SOFT TISSUE NECROSIS [None]
  - OSTEOPOROSIS [None]
  - VIRAL INFECTION [None]
  - PAIN IN JAW [None]
  - LACERATION [None]
